FAERS Safety Report 9974123 (Version 1)
Quarter: 2014Q1

REPORT INFORMATION
  Report Type: Report from Study
  Country: DE (occurrence: DE)
  Receive Date: 20140306
  Receipt Date: 20140306
  Transmission Date: 20141002
  Serious: Yes (Hospitalization)
  Sender: FDA-Public Use
  Company Number: DE-GLAXOSMITHKLINE-B0646450A

PATIENT
  Sex: Female
  Weight: 60 kg

DRUGS (3)
  1. LAPATINIB [Suspect]
     Indication: BREAST CANCER
     Dosage: 1250MG PER DAY
     Route: 048
     Dates: start: 20100329
  2. PACLITAXEL [Suspect]
     Indication: BREAST CANCER
     Dosage: 295.7MG EVERY 3 WEEKS
     Route: 042
     Dates: start: 20100329
  3. MYOCET [Suspect]
     Indication: BREAST CANCER
     Dosage: 101.4MG EVERY 3 WEEKS
     Route: 042
     Dates: start: 20100329

REACTIONS (2)
  - Rash [Recovered/Resolved]
  - Febrile neutropenia [Recovered/Resolved]
